FAERS Safety Report 6098223-1 (Version None)
Quarter: 2009Q1

REPORT INFORMATION
  Report Type: 
  Country: None (occurrence: None)
  Receive Date: 20090227
  Receipt Date: 20090220
  Transmission Date: 20090719
  Serious: Yes (Other)
  Sender: FDA-Public Use
  Company Number: US-GENENTECH-276399

PATIENT
  Sex: Male

DRUGS (2)
  1. RITUXAN [Suspect]
     Indication: LYMPHOMA
     Dosage: UNK UNK, UNKNOWN
     Route: 065
  2. RITUXAN [Suspect]
     Indication: CUTANEOUS LUPUS ERYTHEMATOSUS

REACTIONS (3)
  - DYSARTHRIA [None]
  - VERTIGO [None]
  - VISUAL IMPAIRMENT [None]
